FAERS Safety Report 10073696 (Version 1)
Quarter: 2014Q2

REPORT INFORMATION
  Report Type: Spontaneous
  Country: CH (occurrence: CH)
  Receive Date: 20140411
  Receipt Date: 20140411
  Transmission Date: 20141212
  Serious: Yes (Other)
  Sender: FDA-Public Use
  Company Number: PHHY2014CH041753

PATIENT
  Age: 73 Year
  Sex: Female

DRUGS (1)
  1. ACETYLSALICYLIC ACID [Suspect]
     Indication: CORONARY ARTERY DISEASE
     Dosage: 100 MG, QD

REACTIONS (8)
  - Gastrointestinal fistula [Recovered/Resolved]
  - Pyloric stenosis [Recovered/Resolved]
  - Gastrointestinal disorder [Recovered/Resolved]
  - Gastrointestinal inflammation [Recovered/Resolved]
  - Abdominal pain upper [Recovered/Resolved]
  - Gastrointestinal obstruction [Recovered/Resolved]
  - Gastrointestinal oedema [Recovered/Resolved]
  - Mucosal inflammation [Recovered/Resolved]
